FAERS Safety Report 7499758-7 (Version None)
Quarter: 2011Q2

REPORT INFORMATION
  Report Type: 
  Country: None (occurrence: None)
  Receive Date: 20110524
  Receipt Date: 20110513
  Transmission Date: 20111010
  Serious: Yes (Death, Life-Threatening, Hospitalization)
  Sender: FDA-Public Use
  Company Number: FR-ACTELION-A-CH2011-45349

PATIENT
  Sex: Female
  Weight: 84 kg

DRUGS (10)
  1. METHOTREXATE [Concomitant]
  2. ASPIRIN [Concomitant]
  3. TRACLEER [Suspect]
     Dosage: 62.5 MG, BID
     Route: 048
     Dates: start: 20091221
  4. PREDNISONE [Concomitant]
  5. ACETAMINOPHEN [Concomitant]
  6. IBANDRONATE SODIUM [Concomitant]
  7. AMLODIPINE [Concomitant]
  8. TRACLEER [Suspect]
     Indication: SKIN ULCER
     Dosage: 125 MG, BID
     Route: 048
  9. HYDROCHLOROTHIAZIDE [Concomitant]
  10. ENALAPRIL MALEATE [Concomitant]

REACTIONS (6)
  - ABDOMINAL PAIN UPPER [None]
  - METASTASES TO LIVER [None]
  - METASTASES TO LUNG [None]
  - CARDIAC FAILURE [None]
  - ADENOCARCINOMA PANCREAS [None]
  - INTESTINAL OBSTRUCTION [None]
